FAERS Safety Report 8245495-0 (Version None)
Quarter: 2012Q1

REPORT INFORMATION
  Report Type: 
  Country: None (occurrence: None)
  Receive Date: 20120329
  Receipt Date: 20120320
  Transmission Date: 20120608
  Serious: Yes (Death)
  Sender: FDA-Public Use
  Company Number: PT-BAXTER-2010BH025743

PATIENT
  Sex: Male

DRUGS (2)
  1. EXTRANEAL [Suspect]
     Route: 033
     Dates: start: 20100608
  2. PHYSIONEAL 40 GLUCOSE 1,36% P/V / 13,6 MG/ML [Suspect]
     Route: 033
     Dates: start: 20100608

REACTIONS (1)
  - DEATH [None]
